FAERS Safety Report 15258062 (Version 1)
Quarter: 2018Q4

REPORT INFORMATION
  Report Type: Spontaneous
  Country: US (occurrence: US)
  Receive Date: 20180809
  Receipt Date: 20180809
  Transmission Date: 20190204
  Serious: No
  Sender: FDA-Public Use
  Company Number: US-HETERO CORPORATE-HET2018US00757

PATIENT
  Sex: Male
  Weight: 117.91 kg

DRUGS (1)
  1. SILDENAFIL. [Suspect]
     Active Substance: SILDENAFIL
     Indication: ERECTILE DYSFUNCTION
     Dosage: 100 MG, QD
     Route: 065
     Dates: start: 20180728, end: 20180802

REACTIONS (1)
  - Patient dissatisfaction with treatment [Unknown]

NARRATIVE: CASE EVENT DATE: 20180728
